FAERS Safety Report 14220600 (Version 4)
Quarter: 2018Q1

REPORT INFORMATION
  Report Type: Report from Study
  Country: BR (occurrence: BR)
  Receive Date: 20171124
  Receipt Date: 20180314
  Transmission Date: 20180508
  Serious: Yes (Other)
  Sender: FDA-Public Use
  Company Number: PHHY2016BR165224

PATIENT
  Age: 61 Year
  Sex: Female
  Weight: 78 kg

DRUGS (13)
  1. ALENIA [Concomitant]
     Active Substance: BUDESONIDE\FORMOTEROL FUMARATE
     Indication: ASTHMA
     Dosage: TID
     Route: 065
  2. LUFTAL [Concomitant]
     Active Substance: DIMETHICONE
     Indication: GASTROINTESTINAL HYPOMOTILITY
     Dosage: 30 DRP, QD
     Route: 065
  3. LUFTAL [Concomitant]
     Active Substance: DIMETHICONE
     Indication: FLATULENCE
  4. XOLAIR [Suspect]
     Active Substance: OMALIZUMAB
     Dosage: UNK
     Route: 058
     Dates: start: 20161110
  5. EUTHYROX [Concomitant]
     Active Substance: LEVOTHYROXINE SODIUM
     Indication: THYROID DISORDER
     Dosage: 1 DF, QD
     Route: 048
  6. XOLAIR [Suspect]
     Active Substance: OMALIZUMAB
     Indication: HYPERSENSITIVITY
     Dosage: UNK
     Route: 058
     Dates: start: 20160914
  7. FORASEQ [Suspect]
     Active Substance: BUDESONIDE\FORMOTEROL FUMARATE
     Indication: PRODUCT USED FOR UNKNOWN INDICATION
     Route: 065
  8. SERETIDE [Concomitant]
     Active Substance: FLUTICASONE PROPIONATE\SALMETEROL XINAFOATE
     Indication: PRODUCT USED FOR UNKNOWN INDICATION
     Route: 065
  9. XOLAIR [Suspect]
     Active Substance: OMALIZUMAB
     Dosage: UNK
     Route: 058
     Dates: start: 20160202
  10. ALENIA [Concomitant]
     Active Substance: BUDESONIDE\FORMOTEROL FUMARATE
     Dosage: 421 MG, UNK
     Route: 055
  11. XOLAIR [Suspect]
     Active Substance: OMALIZUMAB
     Indication: ASTHMA
     Dosage: 600 MG (4 AMPOULS OF 150 MG), BIW
     Route: 058
     Dates: start: 20160831
  12. XOLAIR [Suspect]
     Active Substance: OMALIZUMAB
     Dosage: BIW
     Route: 058
  13. XOLAIR [Suspect]
     Active Substance: OMALIZUMAB
     Dosage: 600 MG, EVERY 15 DAYS
     Route: 058
     Dates: start: 20170216, end: 20170216

REACTIONS (44)
  - Wheezing [Not Recovered/Not Resolved]
  - Lung disorder [Unknown]
  - Frustration tolerance decreased [Unknown]
  - Catarrh [Not Recovered/Not Resolved]
  - Injection site pain [Recovered/Resolved]
  - Injection site discolouration [Recovered/Resolved]
  - Injection site haematoma [Recovered/Resolved]
  - Fatigue [Unknown]
  - Nausea [Unknown]
  - Urticaria [Unknown]
  - Dysgeusia [Unknown]
  - Application site erythema [Recovered/Resolved]
  - Injection site pain [Unknown]
  - Hypersensitivity [Recovering/Resolving]
  - Erythema [Unknown]
  - Pruritus [Unknown]
  - Hypothyroidism [Recovering/Resolving]
  - Abdominal distension [Not Recovered/Not Resolved]
  - Spirometry abnormal [Recovering/Resolving]
  - Apnoea [Unknown]
  - Injection site pain [Recovered/Resolved]
  - Swelling [Unknown]
  - Malaise [Not Recovered/Not Resolved]
  - Thyroid disorder [Not Recovered/Not Resolved]
  - Pneumonia [Recovering/Resolving]
  - Hypersensitivity [Recovered/Resolved]
  - Injection site haematoma [Recovered/Resolved]
  - Tension [Unknown]
  - Emotional disorder [Unknown]
  - Immunodeficiency [Unknown]
  - Gastritis [Unknown]
  - Productive cough [Unknown]
  - Injection site swelling [Recovered/Resolved]
  - Insomnia [Unknown]
  - Dyspnoea [Unknown]
  - Nasopharyngitis [Unknown]
  - Asthmatic crisis [Not Recovered/Not Resolved]
  - Movement disorder [Recovering/Resolving]
  - Cold sweat [Recovered/Resolved]
  - Liver disorder [Unknown]
  - Abdominal discomfort [Unknown]
  - Injection site discolouration [Unknown]
  - Stress [Unknown]
  - Nervous system disorder [Unknown]

NARRATIVE: CASE EVENT DATE: 2016
